FAERS Safety Report 7322782-1 (Version None)
Quarter: 2011Q1

REPORT INFORMATION
  Report Type: 
  Country: None (occurrence: None)
  Receive Date: 20110216
  Receipt Date: 20110201
  Transmission Date: 20110831
  Serious: Yes (Other)
  Sender: FDA-Public Use
  Company Number: AUR-APL-2011-00456

PATIENT
  Age: 65 Year
  Sex: Male

DRUGS (1)
  1. METFORMIN HCL [Suspect]

REACTIONS (3)
  - HYPERHOMOCYSTEINAEMIA [None]
  - DEEP VEIN THROMBOSIS [None]
  - ANAEMIA VITAMIN B12 DEFICIENCY [None]
